FAERS Safety Report 17498387 (Version 2)
Quarter: 2021Q1

REPORT INFORMATION
  Report Type: Report from Study
  Country: US (occurrence: US)
  Receive Date: 20200304
  Receipt Date: 20210205
  Transmission Date: 20210419
  Serious: No
  Sender: FDA-Public Use
  Company Number: NVSC2020US062113

PATIENT
  Sex: Male

DRUGS (2)
  1. ENTRESTO [Suspect]
     Active Substance: SACUBITRIL\VALSARTAN
     Indication: CARDIAC FAILURE
     Dosage: 1 DF (SACUBITRIL 24MG,VALSARTAN26 MG), BID
     Route: 048
  2. ENTRESTO [Suspect]
     Active Substance: SACUBITRIL\VALSARTAN
     Indication: CARDIAC FAILURE CHRONIC

REACTIONS (8)
  - Product availability issue [Unknown]
  - Dyspnoea [Unknown]
  - Weight increased [Unknown]
  - Confusional state [Unknown]
  - Product dose omission issue [Unknown]
  - Fatigue [Unknown]
  - Swelling [Unknown]
  - Amnesia [Unknown]
